FAERS Safety Report 4464366-9 (Version None)
Quarter: 2004Q3

REPORT INFORMATION
  Report Type: 
  Country: None (occurrence: None)
  Receive Date: 20040929
  Receipt Date: 20040910
  Transmission Date: 20050211
  Serious: Yes (Hospitalization, Other)
  Sender: FDA-Public Use
  Company Number: US_980604252

PATIENT
  Age: 60 Year
  Sex: Female
  Weight: 75 kg

DRUGS (11)
  1. HUMALOG [Suspect]
     Indication: DIABETES MELLITUS
     Dates: start: 20000201
  2. EVISTA [Suspect]
     Indication: OSTEOPOROSIS PROPHYLAXIS
     Dosage: 60 MG/1 DAY
  3. HUMULIN R [Suspect]
     Indication: DIABETES MELLITUS
     Dosage: 14 U DAY
  4. HUMULIN L [Suspect]
     Indication: DIABETES MELLITUS
     Dosage: 23 U DAY
     Dates: start: 19900101
  5. LENTE ILETIN II (PORK) [Suspect]
     Indication: DIABETES MELLITUS
  6. CALCIUM [Concomitant]
  7. LOPRESSOR [Concomitant]
  8. MAXZIDE [Concomitant]
  9. ISORDIL [Concomitant]
  10. LANTUS [Concomitant]
  11. POTASSIUM [Concomitant]

REACTIONS (18)
  - ADENOMA BENIGN [None]
  - BLOOD GLUCOSE INCREASED [None]
  - CORONARY ARTERY SURGERY [None]
  - HYSTERECTOMY [None]
  - INTERMITTENT CLAUDICATION [None]
  - MYOCARDIAL INFARCTION [None]
  - NASAL OPERATION [None]
  - NEUROPATHY PERIPHERAL [None]
  - OSTEOMYELITIS [None]
  - PAIN IN EXTREMITY [None]
  - PARATHYROID GLAND OPERATION [None]
  - PARKINSON'S DISEASE [None]
  - PERIPHERAL VASCULAR DISORDER [None]
  - RENAL DISORDER [None]
  - RETINOPATHY [None]
  - SURGERY [None]
  - TOE AMPUTATION [None]
  - WEIGHT INCREASED [None]
